FAERS Safety Report 6162686-3 (Version None)
Quarter: 2009Q2

REPORT INFORMATION
  Report Type: 
  Country: None (occurrence: None)
  Receive Date: 20090417
  Receipt Date: 20090413
  Transmission Date: 20091009
  Serious: Yes (Other)
  Sender: FDA-Public Use
  Company Number: THQ2009A02146

PATIENT
  Age: 13 Year
  Sex: Male

DRUGS (2)
  1. LANSOPRAZOLE [Suspect]
     Dosage: 60 MG (30 MG,2 IN 1 D) PER ORAL
     Route: 048
     Dates: start: 20070409
  2. RENNIES /00447201/ [Concomitant]

REACTIONS (3)
  - ACUTE PHASE REACTION [None]
  - FATIGUE [None]
  - VITAMIN B12 DECREASED [None]
